FAERS Safety Report 9925141 (Version 1)
Quarter: 2014Q1

REPORT INFORMATION
  Report Type: Spontaneous
  Country: US (occurrence: None)
  Receive Date: 20140220
  Receipt Date: 20140220
  Transmission Date: 20141002
  Serious: No
  Sender: FDA-Public Use
  Company Number: AUR-APL-2014-01705

PATIENT
  Age: 64 Year
  Sex: Female

DRUGS (4)
  1. VENLAFAXINE (VENLAFAXINE) [Suspect]
     Indication: DEPRESSION
     Dosage: 150MG (150MG, 1 IN 1D) ORAL
     Route: 048
  2. EFFEXOR XR [Suspect]
     Indication: PRODUCT USED FOR UNKNOWN INDICATION
  3. ELMIRON (PENTOSAN POLYSULFATE SODIUM) [Concomitant]
  4. EFFEXOR (VENLAFAXINE HYDROCHLORIDE) UNKNOWN [Suspect]
     Indication: PRODUCT USED FOR UNKNOWN INDICATION

REACTIONS (3)
  - Hearing impaired [None]
  - Colon operation [None]
  - Drug ineffective [None]
